FAERS Safety Report 13306888 (Version 1)
Quarter: 2017Q1

REPORT INFORMATION
  Report Type: Spontaneous
  Country: US (occurrence: US)
  Receive Date: 20170308
  Receipt Date: 20170308
  Transmission Date: 20170428
  Serious: No
  Sender: FDA-Public Use
  Company Number: US-AKORN PHARMACEUTICALS-2016AKN00347

PATIENT
  Age: 14 Year
  Sex: Male
  Weight: 68.27 kg

DRUGS (1)
  1. MYORISAN [Suspect]
     Active Substance: ISOTRETINOIN
     Indication: ACNE
     Dosage: 20 MG, 2X/DAY
     Route: 048
     Dates: start: 20160531, end: 20160601

REACTIONS (4)
  - Dysphagia [Recovered/Resolved]
  - Intentional product misuse [Recovered/Resolved]
  - Retching [Recovered/Resolved]
  - Therapy cessation [Unknown]

NARRATIVE: CASE EVENT DATE: 2016
